FAERS Safety Report 8258952-8 (Version None)
Quarter: 2012Q2

REPORT INFORMATION
  Report Type: 
  Country: None (occurrence: None)
  Receive Date: 20120404
  Receipt Date: 20120323
  Transmission Date: 20120825
  Serious: Yes (Death, Hospitalization, Other)
  Sender: FDA-Public Use
  Company Number: GB-ROCHE-1044478

PATIENT
  Sex: Female

DRUGS (12)
  1. LUCENTIS [Suspect]
     Dates: start: 20100410
  2. LUCENTIS [Suspect]
     Dates: start: 20111213
  3. DILTIAZEM HCL [Concomitant]
  4. LATANOPROST [Concomitant]
  5. SIMVASTATIN [Concomitant]
  6. OMEPRAZOLE [Concomitant]
  7. LUCENTIS [Suspect]
     Indication: PRODUCT USED FOR UNKNOWN INDICATION
     Route: 050
  8. LUCENTIS [Suspect]
     Dates: start: 20100610
  9. PENICILLIN [Concomitant]
  10. BRINZOLAMIDE [Concomitant]
  11. SENNA [Concomitant]
  12. FORTISIP (UNITED KINGDOM) [Concomitant]

REACTIONS (5)
  - INAPPROPRIATE SCHEDULE OF DRUG ADMINISTRATION [None]
  - MYOCARDIAL INFARCTION [None]
  - ANAEMIA [None]
  - UPPER GASTROINTESTINAL HAEMORRHAGE [None]
  - HAEMOGLOBIN DECREASED [None]
